FAERS Safety Report 23338809 (Version 1)
Quarter: 2023Q4

REPORT INFORMATION
  Report Type: Spontaneous
  Country: CN (occurrence: CN)
  Receive Date: 20231226
  Receipt Date: 20231226
  Transmission Date: 20240109
  Serious: Yes (Other)
  Sender: FDA-Public Use
  Company Number: None

PATIENT
  Age: 45 Year
  Sex: Female
  Weight: 62 kg

DRUGS (12)
  1. CYCLOPHOSPHAMIDE [Suspect]
     Active Substance: CYCLOPHOSPHAMIDE
     Indication: Chemotherapy
     Dosage: 950 MG, Q3W X 4 TIMES, DILUTED WITH 50 ML OF SODIUM CHLORIDE, FIRST CYCLE, AS A PART OF EC-T REGIMEN
     Route: 042
     Dates: start: 20231031
  2. CYCLOPHOSPHAMIDE [Suspect]
     Active Substance: CYCLOPHOSPHAMIDE
     Indication: Breast cancer female
     Dosage: 950 MG, Q3W X 4 TIMES, DILUTED WITH 50 ML OF SODIUM CHLORIDE, SECOND CYCLE, AS A PART OF EC-T REGIME
     Route: 042
     Dates: start: 20231121
  3. CYCLOPHOSPHAMIDE [Suspect]
     Active Substance: CYCLOPHOSPHAMIDE
     Indication: Breast cancer stage III
  4. CYCLOPHOSPHAMIDE [Suspect]
     Active Substance: CYCLOPHOSPHAMIDE
     Indication: Invasive breast carcinoma
  5. EPIRUBICIN HYDROCHLORIDE [Suspect]
     Active Substance: EPIRUBICIN HYDROCHLORIDE
     Indication: Chemotherapy
     Dosage: 160 MG, ONCE IN 21 DAYS, DILUTED WITH 50 ML OF WATER FOR INJECTION, FIRST CYCLE, AS A PART OF EC-T R
     Route: 042
     Dates: start: 20231031
  6. EPIRUBICIN HYDROCHLORIDE [Suspect]
     Active Substance: EPIRUBICIN HYDROCHLORIDE
     Indication: Breast cancer female
     Dosage: 160 MG, ONCE IN 21 DAYS, DILUTED WITH 50 ML OF WATER FOR INJECTION, SECOND CYCLE, AS A PART OF EC-T
     Route: 042
     Dates: start: 20231121
  7. EPIRUBICIN HYDROCHLORIDE [Suspect]
     Active Substance: EPIRUBICIN HYDROCHLORIDE
     Indication: Breast cancer stage III
  8. EPIRUBICIN HYDROCHLORIDE [Suspect]
     Active Substance: EPIRUBICIN HYDROCHLORIDE
     Indication: Invasive breast carcinoma
  9. SODIUM CHLORIDE [Suspect]
     Active Substance: SODIUM CHLORIDE
     Indication: Medication dilution
     Dosage: 50 ML, Q3W X 4 TIMES, USED TO DILUTE 950 MG OF CYCLOPHOSPHAMIDE, FIRST CYCLE, AS A PART OF EC-T REGI
     Route: 042
     Dates: start: 20231031
  10. SODIUM CHLORIDE [Suspect]
     Active Substance: SODIUM CHLORIDE
     Dosage: 50 ML, Q3W X 4 TIMES, USED TO DILUTE 950 MG OF CYCLOPHOSPHAMIDE, SECOND CYCLE, AS A PART OF EC-T REG
     Route: 042
     Dates: start: 20231121
  11. STERILE WATER [Suspect]
     Active Substance: WATER
     Indication: Medication dilution
     Dosage: 50 ML, ONCE IN 21 DAYS, USED TO DILUTE 160 MG OF EPIRUBICIN HYDROCHLORIDE, FIRST CYCLE, AS A PART OF
     Route: 042
     Dates: start: 20231031
  12. STERILE WATER [Suspect]
     Active Substance: WATER
     Dosage: 50 ML, ONCE IN 21 DAYS, USED TO DILUTE 160 MG OF EPIRUBICIN HYDROCHLORIDE, SECOND CYCLE, AS A PART O
     Route: 042
     Dates: start: 20231121

REACTIONS (2)
  - Breast cancer [Unknown]
  - White blood cell count decreased [Recovered/Resolved]

NARRATIVE: CASE EVENT DATE: 20231129
